FAERS Safety Report 24462141 (Version 1)
Quarter: 2024Q4

REPORT INFORMATION
  Report Type: Report from Study
  Country: US (occurrence: US)
  Receive Date: 20241018
  Receipt Date: 20241018
  Transmission Date: 20250115
  Serious: No
  Sender: ROCHE
  Company Number: US-ROCHE-3578322

PATIENT
  Age: 64 Year
  Sex: Male

DRUGS (16)
  1. RITUXIMAB [Suspect]
     Active Substance: RITUXIMAB
     Indication: Diffuse large B-cell lymphoma
     Route: 065
     Dates: start: 20190627, end: 20190717
  2. RITUXIMAB [Suspect]
     Active Substance: RITUXIMAB
     Indication: Myelodysplastic syndrome
  3. POLATUZUMAB VEDOTIN [Suspect]
     Active Substance: POLATUZUMAB VEDOTIN
     Indication: Diffuse large B-cell lymphoma
     Route: 065
     Dates: start: 20190627, end: 20190717
  4. POLATUZUMAB VEDOTIN [Suspect]
     Active Substance: POLATUZUMAB VEDOTIN
     Indication: Myelodysplastic syndrome
  5. ACETYLCYSTEINE [Concomitant]
     Active Substance: ACETYLCYSTEINE
  6. ASPIRIN [Concomitant]
     Active Substance: ASPIRIN
  7. VITAMIN B COMPLEX [Concomitant]
     Active Substance: CYANOCOBALAMIN\DEXPANTHENOL\NIACINAMIDE\PYRIDOXINE HYDROCHLORIDE\RIBOFLAVIN 5^-PHOSPHATE SODIUM\THIA
  8. DIPHENHYDRAMINE [Concomitant]
     Active Substance: DIPHENHYDRAMINE
  9. DOCONEXENT [Concomitant]
     Active Substance: DOCONEXENT
  10. FAMCICLOVIR [Concomitant]
     Active Substance: FAMCICLOVIR
  11. FEXOFENADINE [Concomitant]
     Active Substance: FEXOFENADINE HYDROCHLORIDE
  12. FLECAINIDE [Concomitant]
     Active Substance: FLECAINIDE
  13. FLUCONAZOLE [Concomitant]
     Active Substance: FLUCONAZOLE
  14. IVERMECTIN [Concomitant]
     Active Substance: IVERMECTIN
  15. LEVOFLOXACIN [Concomitant]
     Active Substance: LEVOFLOXACIN
  16. METOPROLOL [Concomitant]
     Active Substance: METOPROLOL

REACTIONS (3)
  - Nasopharyngitis [Unknown]
  - Herpes virus infection [Unknown]
  - Oral mucosal erythema [Unknown]
